FAERS Safety Report 5875331-9 (Version None)
Quarter: 2008Q3

REPORT INFORMATION
  Report Type: 
  Country: None (occurrence: None)
  Receive Date: 20080904
  Receipt Date: 20080819
  Transmission Date: 20090109
  Serious: Yes (Hospitalization)
  Sender: FDA-Public Use
  Company Number: 2008BI021442

PATIENT
  Age: 45 Year
  Sex: Female
  Weight: 70 kg

DRUGS (2)
  1. AVONEX [Suspect]
     Indication: RELAPSING-REMITTING MULTIPLE SCLEROSIS
     Dosage: 30 UG; QW; IM
     Route: 030
     Dates: start: 20071101
  2. QUANTALAN [Concomitant]

REACTIONS (6)
  - FEELING ABNORMAL [None]
  - HYPERTENSION [None]
  - INFLUENZA LIKE ILLNESS [None]
  - MENSTRUATION IRREGULAR [None]
  - NIGHT SWEATS [None]
  - TREMOR [None]
